FAERS Safety Report 5102828-1 (Version None)
Quarter: 2006Q3

REPORT INFORMATION
  Report Type: 
  Country: None (occurrence: None)
  Receive Date: 20060907
  Receipt Date: 20060825
  Transmission Date: 20061208
  Serious: Yes (Hospitalization, Other)
  Sender: FDA-Public Use
  Company Number: 2006106215

PATIENT
  Age: 79 Year
  Sex: Female
  Weight: 37 kg

DRUGS (6)
  1. TOLTERODINE TARTRATE [Suspect]
     Indication: MICTURITION URGENCY
     Dosage: 4MG (UNKNOWN); ORAL
     Route: 048
  2. PAXIL [Suspect]
     Indication: ANXIETY DISORDER
     Dosage: 10 MG (10 MG, 1 IN 1 D); ORAL
     Route: 048
     Dates: start: 20060808
  3. RIZE (CLOTIAZEPAM) [Concomitant]
  4. AMARYL [Concomitant]
  5. BLOPRESS (CANDESARTAN CILEXETIL) [Concomitant]
  6. LASIX [Concomitant]

REACTIONS (2)
  - ANOREXIA [None]
  - FLUID INTAKE REDUCED [None]
